FAERS Safety Report 15729617 (Version 1)
Quarter: 2018Q4

REPORT INFORMATION
  Report Type: Other
  Country: None (occurrence: IT)
  Receive Date: 20181217
  Receipt Date: 20181217
  Transmission Date: 20190205
  Serious: Yes (Life-Threatening, Hospitalization)
  Sender: FDA-Public Use
  Company Number: IT-SERVIER PHARMACEUTICALS LLC-2060236

PATIENT
  Age: 11 Year
  Sex: Female
  Weight: 38.3 kg

DRUGS (20)
  1. PREDNISONE. [Suspect]
     Active Substance: PREDNISONE
     Route: 048
  2. PYRIDOXINE HYDROCHLORIDE. [Concomitant]
     Active Substance: PYRIDOXINE HYDROCHLORIDE
  3. ONCASPAR [Suspect]
     Active Substance: PEGASPARGASE
     Dates: start: 20120331
  4. IMATINIB MESYLATE. [Suspect]
     Active Substance: IMATINIB MESYLATE
     Route: 048
     Dates: start: 20120604, end: 20120617
  5. PHENOBARBITAL. [Concomitant]
     Active Substance: PHENOBARBITAL
  6. FENOFIBRATE. [Suspect]
     Active Substance: FENOFIBRATE
     Route: 048
     Dates: start: 20121219
  7. DEXAMETHASONE. [Suspect]
     Active Substance: DEXAMETHASONE
     Route: 048
     Dates: start: 20121219
  8. THIOACETAZONE [Concomitant]
  9. IMATINIB MESYLATE. [Suspect]
     Active Substance: IMATINIB MESYLATE
     Route: 048
     Dates: start: 20120508, end: 20120527
  10. IMATINIB MESYLATE. [Suspect]
     Active Substance: IMATINIB MESYLATE
     Route: 048
     Dates: start: 20120829, end: 20121027
  11. ANTITHYMOCYTE IMMUNOGLOBULIN [Concomitant]
     Active Substance: THYMOCYTE IMMUNE GLOBULIN NOS
  12. RANITIDINE. [Suspect]
     Active Substance: RANITIDINE
     Route: 048
     Dates: start: 20120327
  13. PREDNISONE. [Suspect]
     Active Substance: PREDNISONE
     Route: 065
  14. IMATINIB MESYLATE. [Suspect]
     Active Substance: IMATINIB MESYLATE
     Route: 048
     Dates: start: 20120327, end: 20120402
  15. IMATINIB MESYLATE. [Suspect]
     Active Substance: IMATINIB MESYLATE
     Route: 048
     Dates: start: 20120801, end: 20120804
  16. RANITIDINE HYDROCHLORIDE. [Suspect]
     Active Substance: RANITIDINE HYDROCHLORIDE
     Route: 048
     Dates: start: 20120327
  17. CYCLOPHOSPHAMIDE. [Concomitant]
     Active Substance: CYCLOPHOSPHAMIDE
  18. ISONIAZID. [Concomitant]
     Active Substance: ISONIAZID
  19. IMATINIB MESYLATE. [Suspect]
     Active Substance: IMATINIB MESYLATE
     Route: 048
     Dates: start: 20120624, end: 20120706
  20. THIOTEPA. [Concomitant]
     Active Substance: THIOTEPA

REACTIONS (18)
  - Pyrexia [Recovered/Resolved]
  - Pain [Unknown]
  - Left ventricular dysfunction [Recovered/Resolved]
  - Herpes zoster [Recovered/Resolved]
  - Acute kidney injury [Recovered/Resolved]
  - Mucosal inflammation [Recovered/Resolved]
  - Blister [Unknown]
  - Hepatotoxicity [Recovered/Resolved]
  - Respiratory failure [Recovered/Resolved]
  - Hypokinesia [Recovered/Resolved]
  - Bone marrow failure [Recovered/Resolved]
  - Visual impairment [Recovered/Resolved]
  - Febrile neutropenia [Recovered/Resolved]
  - Rash erythematous [Unknown]
  - Escherichia urinary tract infection [Recovered/Resolved]
  - Mitral valve disease [Recovered/Resolved]
  - Dizziness [Recovered/Resolved]
  - Aplasia [Recovered/Resolved]

NARRATIVE: CASE EVENT DATE: 20120401
